FAERS Safety Report 6979465-7 (Version None)
Quarter: 2010Q3

REPORT INFORMATION
  Report Type: 
  Country: None (occurrence: None)
  Receive Date: 20100908
  Receipt Date: 20100820
  Transmission Date: 20110219
  Serious: Yes (Hospitalization)
  Sender: FDA-Public Use
  Company Number: 2009SP002394

PATIENT
  Age: 71 Year
  Sex: Female

DRUGS (3)
  1. ESZOPICLONE [Suspect]
     Indication: INSOMNIA
     Dosage: 2 MG; ; ORAL
     Route: 048
     Dates: start: 20090527
  2. LIPITOR [Concomitant]
  3. ASPIRIN [Concomitant]

REACTIONS (12)
  - ARTERIOSCLEROSIS [None]
  - CORONARY ARTERY DISEASE [None]
  - DISEASE PROGRESSION [None]
  - ELECTROCARDIOGRAM ST SEGMENT DEPRESSION [None]
  - ELECTROCARDIOGRAM T WAVE AMPLITUDE DECREASED [None]
  - GLYCOSYLATED HAEMOGLOBIN INCREASED [None]
  - HYPERLIPIDAEMIA [None]
  - HYPERTENSION [None]
  - LOW DENSITY LIPOPROTEIN INCREASED [None]
  - PRINZMETAL ANGINA [None]
  - VASCULAR STENOSIS [None]
  - VASOSPASM [None]
